FAERS Safety Report 23171227 (Version 1)
Quarter: 2023Q4

REPORT INFORMATION
  Report Type: Spontaneous
  Country: US (occurrence: US)
  Receive Date: 20231110
  Receipt Date: 20231110
  Transmission Date: 20240110
  Serious: Yes (Hospitalization)
  Sender: FDA-Public Use
  Company Number: US-AMNEAL PHARMACEUTICALS-2023-AMRX-03896

PATIENT
  Sex: Female

DRUGS (1)
  1. RYTARY [Suspect]
     Active Substance: CARBIDOPA\LEVODOPA
     Indication: Product used for unknown indication
     Dosage: 10 CAPSULES, QD (48.75/195 MG) 4 CAPS IN THE MORNING 3 CAPS IN THE AFTERNOON AND 3 CAPS AT BEDTIME)
     Route: 048

REACTIONS (1)
  - Adverse event [Unknown]
